FAERS Safety Report 15477509 (Version 2)
Quarter: 2018Q4

REPORT INFORMATION
  Report Type: Report from Study
  Country: DE (occurrence: DE)
  Receive Date: 20181009
  Receipt Date: 20181129
  Transmission Date: 20190205
  Serious: Yes (Other)
  Sender: FDA-Public Use
  Company Number: DE-BAXTER-2018BAX024769

PATIENT
  Age: 79 Year
  Sex: Female

DRUGS (35)
  1. ENDOXAN 1G [Suspect]
     Active Substance: CYCLOPHOSPHAMIDE
     Indication: PRODUCT USED FOR UNKNOWN INDICATION
     Dosage: 750 MG
     Route: 041
     Dates: start: 20180912, end: 20180912
  2. RIXIMYO [Suspect]
     Active Substance: RITUXIMAB
     Indication: DIFFUSE LARGE B-CELL LYMPHOMA
     Dosage: 701 MG, UNK
     Route: 041
     Dates: start: 20180821, end: 20180821
  3. RIXIMYO [Suspect]
     Active Substance: RITUXIMAB
     Dosage: 701 MG, UNK
     Route: 041
     Dates: start: 20180710, end: 20180710
  4. PREDNISONE. [Suspect]
     Active Substance: PREDNISONE
     Dosage: 500 MG, UNK
     Route: 048
     Dates: start: 20181004, end: 20181008
  5. DIMETINDENE [Concomitant]
     Active Substance: DIMETHINDENE
     Indication: PROPHYLAXIS
     Dosage: UNK
     Route: 042
     Dates: start: 20180619
  6. PALONOSETRON. [Concomitant]
     Active Substance: PALONOSETRON HYDROCHLORIDE
     Indication: PROPHYLAXIS
     Dosage: UNK
     Route: 042
     Dates: start: 20180620
  7. RANITIDIN [Concomitant]
     Active Substance: RANITIDINE HYDROCHLORIDE
     Indication: PROPHYLAXIS
     Dosage: UNK
     Route: 042
     Dates: start: 20180611
  8. ENDOXAN 1G [Suspect]
     Active Substance: CYCLOPHOSPHAMIDE
     Dosage: 982 MG, UNK
     Route: 041
     Dates: start: 20180822, end: 20180822
  9. PREDNISOLUT [Concomitant]
     Active Substance: PREDNISOLONE
     Indication: PROPHYLAXIS
     Dosage: UNK
     Route: 042
     Dates: start: 20180619
  10. ENDOXAN 1G [Suspect]
     Active Substance: CYCLOPHOSPHAMIDE
     Dosage: 982 MG, UNK
     Route: 041
     Dates: start: 20180620, end: 20180620
  11. ENDOXAN 1G [Suspect]
     Active Substance: CYCLOPHOSPHAMIDE
     Dosage: 750 MG, UNK
     Route: 041
     Dates: start: 20181004, end: 20181004
  12. VINCRISTINE [Suspect]
     Active Substance: VINCRISTINE
     Dosage: 1 MG, UNK
     Route: 041
     Dates: start: 20180620, end: 20180620
  13. PREDNISONE. [Suspect]
     Active Substance: PREDNISONE
     Dosage: 500 MG, UNK
     Route: 048
     Dates: start: 20180801, end: 20180805
  14. PARACETAMOL [Concomitant]
     Active Substance: ACETAMINOPHEN
     Indication: PROPHYLAXIS
     Dosage: UNK
     Route: 048
     Dates: start: 20180619
  15. ENDOXAN 1G [Suspect]
     Active Substance: CYCLOPHOSPHAMIDE
     Indication: DIFFUSE LARGE B-CELL LYMPHOMA
     Dosage: 982 MG, UNK
     Route: 041
     Dates: start: 20180801, end: 20180801
  16. DOXORUBICIN [Suspect]
     Active Substance: DOXORUBICIN
     Dosage: 65.45 MG, UNK
     Route: 041
     Dates: start: 20180620, end: 20180620
  17. NEULASTA [Concomitant]
     Active Substance: PEGFILGRASTIM
     Indication: PROPHYLAXIS
     Dosage: UNK
     Route: 058
     Dates: start: 20180621
  18. RIXIMYO [Suspect]
     Active Substance: RITUXIMAB
     Indication: PRODUCT USED FOR UNKNOWN INDICATION
     Dosage: 701 MG, UNK
     Route: 041
     Dates: start: 20180731, end: 20180731
  19. RIXIMYO [Suspect]
     Active Substance: RITUXIMAB
     Dosage: 701 MG, UNK
     Route: 041
     Dates: start: 20181002, end: 20181002
  20. DOXORUBICIN [Suspect]
     Active Substance: DOXORUBICIN
     Indication: DIFFUSE LARGE B-CELL LYMPHOMA
     Dosage: 47 MG, UNK
     Route: 041
     Dates: start: 20180912, end: 20180912
  21. PREDNISONE. [Suspect]
     Active Substance: PREDNISONE
     Indication: DIFFUSE LARGE B-CELL LYMPHOMA
     Dosage: 500 MG, UNK
     Route: 048
     Dates: start: 20180822, end: 20180826
  22. PREDNISONE. [Suspect]
     Active Substance: PREDNISONE
     Dosage: 500 MG, UNK
     Route: 048
     Dates: start: 20180912, end: 20180916
  23. RIXIMYO [Suspect]
     Active Substance: RITUXIMAB
     Dosage: 701 MG, UNK
     Route: 041
     Dates: start: 20180911, end: 20180911
  24. RIXIMYO [Suspect]
     Active Substance: RITUXIMAB
     Dosage: 701 MG, UNK
     Route: 041
     Dates: start: 20180619, end: 20180619
  25. VINCRISTINE [Suspect]
     Active Substance: VINCRISTINE
     Indication: PRODUCT USED FOR UNKNOWN INDICATION
     Dosage: 1 MG, UNK
     Route: 041
     Dates: start: 20180801, end: 20180801
  26. DOXORUBICIN [Suspect]
     Active Substance: DOXORUBICIN
     Dosage: 47 MG, UNK
     Route: 041
     Dates: start: 20181004, end: 20181004
  27. VINCRISTINE [Suspect]
     Active Substance: VINCRISTINE
     Indication: DIFFUSE LARGE B-CELL LYMPHOMA
     Dosage: 1 MG, UNK
     Route: 041
     Dates: start: 20180711, end: 20180711
  28. DOXORUBICIN [Suspect]
     Active Substance: DOXORUBICIN
     Indication: PRODUCT USED FOR UNKNOWN INDICATION
     Dosage: 65.45 MG, UNK
     Route: 041
     Dates: start: 20180711, end: 20180711
  29. PREDNISONE. [Suspect]
     Active Substance: PREDNISONE
     Indication: PRODUCT USED FOR UNKNOWN INDICATION
     Dosage: 500 MG, UNK
     Route: 048
     Dates: start: 20180711, end: 20180715
  30. MESNA. [Concomitant]
     Active Substance: MESNA
     Indication: PROPHYLAXIS
     Dosage: UNK
     Route: 042
     Dates: start: 20180620
  31. ENDOXAN 1G [Suspect]
     Active Substance: CYCLOPHOSPHAMIDE
     Dosage: 982 MG, UNK
     Route: 041
     Dates: start: 20180711, end: 20180711
  32. DOXORUBICIN [Suspect]
     Active Substance: DOXORUBICIN
     Dosage: 65.45 MG, UNK
     Route: 041
     Dates: start: 20180822, end: 20180822
  33. DOXORUBICIN [Suspect]
     Active Substance: DOXORUBICIN
     Dosage: 65.45 MG, UNK
     Route: 041
     Dates: start: 20180801, end: 20180801
  34. PREDNISONE. [Suspect]
     Active Substance: PREDNISONE
     Dosage: 500 MG, UNK
     Route: 048
     Dates: start: 20180620, end: 20180624
  35. PANTOZOL [Concomitant]
     Active Substance: PANTOPRAZOLE SODIUM
     Indication: PROPHYLAXIS
     Dosage: UNK
     Route: 048
     Dates: start: 20180426

REACTIONS (5)
  - Abnormal faeces [Not Recovered/Not Resolved]
  - Fatigue [Not Recovered/Not Resolved]
  - Diarrhoea [Not Recovered/Not Resolved]
  - Polyneuropathy [Not Recovered/Not Resolved]
  - Incontinence [Not Recovered/Not Resolved]

NARRATIVE: CASE EVENT DATE: 20180725
